FAERS Safety Report 22156813 (Version 1)
Quarter: 2023Q1

REPORT INFORMATION
  Report Type: Spontaneous
  Country: CN (occurrence: CN)
  Receive Date: 20230330
  Receipt Date: 20230330
  Transmission Date: 20230417
  Serious: Yes (Other)
  Sender: FDA-Public Use
  Company Number: CN-PFIZER INC-PV202300057279

PATIENT
  Age: 60 Year
  Sex: Male
  Weight: 66 kg

DRUGS (1)
  1. VFEND [Suspect]
     Active Substance: VORICONAZOLE
     Indication: Fungal infection
     Dosage: 0.2 G, 2X/DAY
     Route: 041
     Dates: start: 20230310, end: 20230312

REACTIONS (3)
  - Hallucination [Recovering/Resolving]
  - Epilepsy [Recovering/Resolving]
  - Mental disorder [Recovering/Resolving]

NARRATIVE: CASE EVENT DATE: 20230310
